FAERS Safety Report 16946179 (Version 1)
Quarter: 2019Q4

REPORT INFORMATION
  Report Type: Spontaneous
  Country: US (occurrence: US)
  Receive Date: 20191022
  Receipt Date: 20191022
  Transmission Date: 20200122
  Serious: No
  Sender: FDA-Public Use
  Company Number: US-SA-2019SA288688

PATIENT

DRUGS (1)
  1. LANTUS SOLOSTAR [Suspect]
     Active Substance: INSULIN GLARGINE
     Dosage: 10 U
     Route: 065

REACTIONS (5)
  - Frequent bowel movements [Unknown]
  - Blood glucose decreased [Unknown]
  - Weight decreased [Unknown]
  - Decreased appetite [Unknown]
  - Injection site pain [Unknown]
